FAERS Safety Report 26025648 (Version 1)
Quarter: 2025Q4

REPORT INFORMATION
  Report Type: Spontaneous
  Country: EU (occurrence: EU)
  Receive Date: 20251111
  Receipt Date: 20251111
  Transmission Date: 20260118
  Serious: Yes (Other)
  Sender: RANBAXY
  Company Number: EU-AFSSAPS-AN2025000920

PATIENT
  Age: 72 Year
  Sex: Female

DRUGS (7)
  1. CELIPROLOL [Interacting]
     Active Substance: CELIPROLOL
     Indication: Wrong product administered
     Dosage: 200 MILLIGRAM, IN TOTAL
     Route: 048
     Dates: start: 20250620, end: 20250620
  2. ALFUZOSIN [Interacting]
     Active Substance: ALFUZOSIN
     Indication: Wrong product administered
     Dosage: 10 MILLIGRAM, IN TOTAL
     Route: 048
     Dates: start: 20250620, end: 20250620
  3. CLOZAPINE [Concomitant]
     Active Substance: CLOZAPINE
     Indication: Wrong product administered
     Dosage: 12.5 MILLIGRAM, IN TOTAL
     Route: 048
     Dates: start: 20250620, end: 20250620
  4. LEVODOPA [Concomitant]
     Active Substance: LEVODOPA
     Indication: Wrong product administered
     Dosage: 100 MILLIGRAM, IN TOTAL
     Route: 048
     Dates: start: 20250620, end: 20250620
  5. CARBIDOPA [Concomitant]
     Active Substance: CARBIDOPA
     Indication: Wrong product administered
     Dosage: 10 MILLIGRAM, IN TOTAL
     Route: 048
     Dates: start: 20250620, end: 20250620
  6. PRAVASTATIN [Concomitant]
     Active Substance: PRAVASTATIN
     Indication: Wrong product administered
     Dosage: 20 MILLIGRAM, IN TOTAL
     Route: 048
     Dates: start: 20250620, end: 20250620
  7. JANUMET [Concomitant]
     Active Substance: METFORMIN HYDROCHLORIDE\SITAGLIPTIN PHOSPHATE
     Indication: Wrong product administered
     Dosage: 1 DOSAGE FORM, IN TOTAL
     Route: 048
     Dates: start: 20250620, end: 20250620

REACTIONS (2)
  - Hypotension [Recovered/Resolved]
  - Drug interaction [Recovered/Resolved]

NARRATIVE: CASE EVENT DATE: 20250620
